FAERS Safety Report 23176417 (Version 5)
Quarter: 2024Q1

REPORT INFORMATION
  Report Type: Spontaneous
  Country: US (occurrence: None)
  Receive Date: 20231113
  Receipt Date: 20240214
  Transmission Date: 20240410
  Serious: Yes (Other)
  Sender: FDA-Public Use
  Company Number: US-ROCHE-3455372

PATIENT
  Age: 62 Year
  Sex: Female

DRUGS (6)
  1. VABYSMO [Suspect]
     Active Substance: FARICIMAB\FARICIMAB-SVOA
     Indication: Diabetic retinal oedema
     Dosage: OD DOSES: 5/2022: 7/2022, 7/29/22, 8/26/22, 1/2023, 5/2023?OS DOSES: 4/2022. 5/2022, 7/2022, 8/2022,
     Route: 050
     Dates: start: 2016
  2. AVASTIN [Suspect]
     Active Substance: BEVACIZUMAB
     Indication: Diabetic retinal oedema
     Route: 065
     Dates: start: 2016
  3. LUCENTIS [Suspect]
     Active Substance: RANIBIZUMAB
     Indication: Diabetic retinal oedema
     Route: 065
     Dates: start: 2016
  4. METHOTREXATE [Concomitant]
     Active Substance: METHOTREXATE
  5. INSULIN NOS [Concomitant]
     Active Substance: INSULIN NOS
  6. FOLIC ACID [Concomitant]
     Active Substance: FOLIC ACID

REACTIONS (10)
  - Retinal vein occlusion [Unknown]
  - Blindness [Recovering/Resolving]
  - Retinal occlusive vasculitis [Unknown]
  - Endophthalmitis [Unknown]
  - Eye oedema [Unknown]
  - Photosensitivity reaction [Unknown]
  - Retinitis [Unknown]
  - Haemorrhage [Unknown]
  - Vitritis [Unknown]
  - Off label use [Unknown]

NARRATIVE: CASE EVENT DATE: 20220901
